FAERS Safety Report 7820389-0 (Version None)
Quarter: 2011Q4

REPORT INFORMATION
  Report Type: 
  Country: None (occurrence: None)
  Receive Date: 20111018
  Receipt Date: 20111007
  Transmission Date: 20120403
  Serious: Yes (Death)
  Sender: FDA-Public Use
  Company Number: TR-NOVOPROD-336850

PATIENT

DRUGS (2)
  1. NOVOSEVEN RT [Suspect]
     Indication: POSTPARTUM HAEMORRHAGE
  2. NOVOSEVEN RT [Suspect]
     Indication: ACQUIRED HAEMOPHILIA
     Dosage: 90 A?G/KG, QD
     Route: 065
     Dates: start: 20111005, end: 20111005

REACTIONS (1)
  - DEATH [None]
